FAERS Safety Report 7388927-2 (Version None)
Quarter: 2011Q2

REPORT INFORMATION
  Report Type: 
  Country: None (occurrence: None)
  Receive Date: 20110401
  Receipt Date: 20110330
  Transmission Date: 20111010
  Serious: Yes (Hospitalization, Other)
  Sender: FDA-Public Use
  Company Number: US-PFIZER INC-2011071744

PATIENT
  Age: 74 Year
  Sex: Male

DRUGS (11)
  1. OMEPRAZOLE [Concomitant]
  2. IRON SULFATETHIAMIN COMPOUND TAB [Concomitant]
  3. ACETAMINOPHEN [Concomitant]
  4. VYTORIN [Concomitant]
  5. PYRIDOSTIGMINE [Concomitant]
  6. SENOKOT [Concomitant]
  7. ZOLOFT [Concomitant]
  8. MORPHINE [Concomitant]
  9. LEVOTHYROXINE [Concomitant]
  10. ARGATROBAN [Suspect]
     Indication: HEPARIN-INDUCED THROMBOCYTOPENIA
     Dosage: UNK
     Dates: start: 20110328, end: 20110329
  11. FLOMAX [Concomitant]

REACTIONS (2)
  - HAEMATOMA [None]
  - CARDIAC ARREST [None]
